FAERS Safety Report 6419918-3 (Version None)
Quarter: 2009Q4

REPORT INFORMATION
  Report Type: 
  Country: None (occurrence: None)
  Receive Date: 20091029
  Receipt Date: 20091016
  Transmission Date: 20100525
  Serious: Yes (Other)
  Sender: FDA-Public Use
  Company Number: US-ABBOTT-09P-163-0598782-00

PATIENT
  Sex: Male
  Weight: 82.174 kg

DRUGS (3)
  1. HUMIRA [Suspect]
     Indication: RHEUMATOID ARTHRITIS
     Dates: start: 20080101, end: 20090817
  2. TUMS [Concomitant]
     Indication: BLOOD PHOSPHORUS INCREASED
  3. MAXALT [Concomitant]
     Indication: MIGRAINE
     Route: 048

REACTIONS (8)
  - ANTINEUTROPHIL CYTOPLASMIC ANTIBODY POSITIVE [None]
  - BLOOD CREATININE INCREASED [None]
  - GLOMERULONEPHRITIS [None]
  - HYPERPARATHYROIDISM SECONDARY [None]
  - HYPERPHOSPHATAEMIA [None]
  - NEPHROGENIC ANAEMIA [None]
  - RENAL FAILURE CHRONIC [None]
  - VITAMIN D DEFICIENCY [None]
